FAERS Safety Report 14854707 (Version 1)
Quarter: 2018Q2

REPORT INFORMATION
  Report Type: Report from Study
  Country: GR (occurrence: GR)
  Receive Date: 20180507
  Receipt Date: 20180507
  Transmission Date: 20180711
  Serious: Yes (Hospitalization, Other)
  Sender: FDA-Public Use
  Company Number: GR-BOSCOGEN, INC.-2047327

PATIENT
  Age: 14 Year
  Sex: Female

DRUGS (1)
  1. ACYCLOVIR. [Suspect]
     Active Substance: ACYCLOVIR
     Indication: HERPES SIMPLEX MENINGOENCEPHALITIS
     Route: 042

REACTIONS (3)
  - Infusion site necrosis [Recovered/Resolved]
  - Dermatitis bullous [Recovered/Resolved]
  - Burning sensation [Recovered/Resolved]
